FAERS Safety Report 9602239 (Version 1)
Quarter: 2013Q4

REPORT INFORMATION
  Report Type: Spontaneous
  Country: US (occurrence: US)
  Receive Date: 20131007
  Receipt Date: 20131007
  Transmission Date: 20140711
  Serious: Yes (Hospitalization, Congenital Anomaly, Other)
  Sender: FDA-Public Use
  Company Number: US-ELI_LILLY_AND_COMPANY-US201309008205

PATIENT
  Sex: 0

DRUGS (4)
  1. HUMALOG LISPRO [Suspect]
     Indication: GESTATIONAL DIABETES
     Dosage: UNK, PRN
     Route: 064
     Dates: start: 200902, end: 200908
  2. PRENATAL VITAMINS                  /01549301/ [Concomitant]
     Dosage: UNK, QD
     Route: 064
  3. METFORMIN [Concomitant]
     Indication: GESTATIONAL DIABETES
     Dosage: UNK
     Route: 064
     Dates: start: 200901, end: 200902
  4. LANTUS [Concomitant]
     Indication: GESTATIONAL DIABETES
     Dosage: UNK
     Route: 064
     Dates: end: 200908

REACTIONS (4)
  - Pulmonary hypoplasia [Recovered/Resolved]
  - Talipes [Unknown]
  - Foetal exposure during pregnancy [Recovered/Resolved]
  - Large for dates baby [Recovered/Resolved]
